FAERS Safety Report 8184682-7 (Version None)
Quarter: 2012Q1

REPORT INFORMATION
  Report Type: 
  Country: None (occurrence: None)
  Receive Date: 20120305
  Receipt Date: 20120228
  Transmission Date: 20120608
  Serious: Yes (Hospitalization, Other)
  Sender: FDA-Public Use
  Company Number: US-BAYER-201016913NA

PATIENT
  Age: 40 Year
  Sex: Female
  Weight: 77.098 kg

DRUGS (15)
  1. NOVAREL [Concomitant]
  2. FOLLISTIM [Concomitant]
  3. ANTIPROPULSIVES [Concomitant]
     Indication: DIARRHOEA
     Dosage: UNK
     Route: 048
  4. AMBIEN [Concomitant]
  5. GONADOTROPINS [Concomitant]
  6. COMPAZINE [Concomitant]
     Indication: VOMITING
  7. LORTAB [Concomitant]
  8. YAZ [Suspect]
     Indication: PROPHYLAXIS
  9. IBUPROFEN (ADVIL) [Concomitant]
     Indication: HEADACHE
  10. COMPAZINE [Concomitant]
     Indication: NAUSEA
     Dosage: 25 MG, PRN
     Route: 054
     Dates: start: 20080222
  11. ANTIPROPULSIVES [Concomitant]
  12. YAZ [Suspect]
     Indication: MENSTRUAL CYCLE MANAGEMENT
     Dosage: UNK UNK, QD
     Route: 048
     Dates: start: 20071201, end: 20080223
  13. DIPHENOXYLATE HCL + ATROPINE SULFATE [Concomitant]
  14. LEUPROLIDE ACETATE [Concomitant]
  15. YAZ [Suspect]
     Indication: PREGNANCY

REACTIONS (10)
  - EMOTIONAL DISTRESS [None]
  - STRESS [None]
  - CEREBROVASCULAR ACCIDENT [None]
  - PAIN [None]
  - ANXIETY [None]
  - INTRACRANIAL VENOUS SINUS THROMBOSIS [None]
  - INJURY [None]
  - VENOUS THROMBOSIS [None]
  - DEPRESSION [None]
  - FEAR OF DEATH [None]
